FAERS Safety Report 10082084 (Version 1)
Quarter: 2014Q2

REPORT INFORMATION
  Report Type: Spontaneous
  Country: US (occurrence: US)
  Receive Date: 20140416
  Receipt Date: 20140416
  Transmission Date: 20141212
  Serious: Yes (Other)
  Sender: FDA-Public Use
  Company Number: US-PFIZER INC-2014104127

PATIENT
  Sex: Female

DRUGS (2)
  1. GEODON [Suspect]
     Dosage: UNK
  2. FETZIMA [Suspect]
     Dosage: 20 MG, DAILY
     Route: 048

REACTIONS (1)
  - Hallucination, visual [Recovered/Resolved]
